FAERS Safety Report 6406080-6 (Version None)
Quarter: 2009Q4

REPORT INFORMATION
  Report Type: 
  Country: None (occurrence: None)
  Receive Date: 20091016
  Receipt Date: 20091016
  Transmission Date: 20100525
  Serious: Yes (Hospitalization, Disabling, Other)
  Sender: FDA-Public Use
  Company Number: None

PATIENT
  Age: 78 Year
  Sex: Female
  Weight: 58.4 kg

DRUGS (1)
  1. LYRICA [Suspect]
     Indication: NEUROPATHY PERIPHERAL
     Dosage: 1 TABLET BID PO
     Route: 048
     Dates: start: 20090901, end: 20090927

REACTIONS (6)
  - ABNORMAL BEHAVIOUR [None]
  - FALL [None]
  - HALLUCINATION [None]
  - MENTAL STATUS CHANGES [None]
  - PNEUMONIA [None]
  - TREMOR [None]
